FAERS Safety Report 8480972 (Version 5)
Quarter: 2012Q4

REPORT INFORMATION
  Report Type: Report from Study
  Country: DE (occurrence: DE)
  Receive Date: 20120328
  Receipt Date: 20121120
  Transmission Date: 20130627
  Serious: Yes (Life-Threatening, Other)
  Sender: FDA-Public Use
  Company Number: DE-PFIZER INC-2012073360

PATIENT
  Age: 73 Year
  Sex: Male
  Weight: 65 kg

DRUGS (3)
  1. TEMSIROLIMUS [Suspect]
     Dosage: 75 mg, UNK
     Dates: start: 20120309
  2. BENDAMUSTINE [Suspect]
     Dosage: 161.10 mg, UNK
     Dates: start: 20120308
  3. RITUXIMAB [Suspect]
     Dosage: 671.25 mg, UNK
     Dates: start: 20120307

REACTIONS (1)
  - Lymphopenia [Recovered/Resolved]
